FAERS Safety Report 9800073 (Version 2)
Quarter: 2015Q3

REPORT INFORMATION
  Report Type: Spontaneous
  Country: US (occurrence: US)
  Receive Date: 20140106
  Receipt Date: 20150806
  Transmission Date: 20151125
  Serious: No
  Sender: FDA-Public Use
  Company Number: US-GILEAD-2010-0032174

PATIENT
  Age: 68 Year
  Sex: Female
  Weight: 87.54 kg

DRUGS (18)
  1. ALBUTEROL. [Concomitant]
     Active Substance: ALBUTEROL
  2. OXYGEN. [Concomitant]
     Active Substance: OXYGEN
  3. CYMBALTA [Concomitant]
     Active Substance: DULOXETINE HYDROCHLORIDE
  4. FUROSEMIDE. [Concomitant]
     Active Substance: FUROSEMIDE
  5. SINGULAIR [Concomitant]
     Active Substance: MONTELUKAST SODIUM
  6. DETROL LA [Concomitant]
     Active Substance: TOLTERODINE TARTRATE
  7. ALTACE [Concomitant]
     Active Substance: RAMIPRIL
  8. OXYCODONE HCL [Concomitant]
     Active Substance: OXYCODONE HYDROCHLORIDE
  9. KRISTALOSE [Concomitant]
     Active Substance: LACTULOSE
  10. LETAIRIS [Suspect]
     Active Substance: AMBRISENTAN
     Indication: PULMONARY ARTERIAL HYPERTENSION
     Route: 048
     Dates: start: 20100908
  11. POTASSIUM CHLORIDE. [Concomitant]
     Active Substance: POTASSIUM CHLORIDE
  12. METOPROLOL [Concomitant]
     Active Substance: METOPROLOL
  13. KAPIDEX DR [Concomitant]
  14. FERROUS SULFATE [Concomitant]
     Active Substance: FERROUS SULFATE\FERROUS SULFATE, DRIED
  15. CALCIUM +D [Concomitant]
     Active Substance: CALCIUM\VITAMIN D
  16. ZOCOR [Concomitant]
     Active Substance: SIMVASTATIN
  17. VITAMIN C [Concomitant]
     Active Substance: ASCORBIC ACID
  18. OXYCONTIN [Concomitant]
     Active Substance: OXYCODONE HYDROCHLORIDE

REACTIONS (1)
  - Peripheral swelling [Unknown]
